FAERS Safety Report 6525742-3 (Version None)
Quarter: 2009Q4

REPORT INFORMATION
  Report Type: 
  Country: None (occurrence: None)
  Receive Date: 20091228
  Receipt Date: 20091217
  Transmission Date: 20100525
  Serious: Yes (Hospitalization, Disabling)
  Sender: FDA-Public Use
  Company Number: 1-21098089

PATIENT
  Age: 84 Year
  Sex: Male

DRUGS (1)
  1. WARFARIN SODIUM [Suspect]
     Indication: PULMONARY EMBOLISM
     Dosage: ORAL
     Route: 048

REACTIONS (6)
  - ANGLE CLOSURE GLAUCOMA [None]
  - BLINDNESS UNILATERAL [None]
  - BLOOD PRESSURE SYSTOLIC INCREASED [None]
  - CHOROIDAL HAEMORRHAGE [None]
  - PLATELET COUNT DECREASED [None]
  - VISUAL FIELD DEFECT [None]
